FAERS Safety Report 21043380 (Version 1)
Quarter: 2022Q3

REPORT INFORMATION
  Report Type: Spontaneous
  Country: CN (occurrence: CN)
  Receive Date: 20220705
  Receipt Date: 20220705
  Transmission Date: 20221027
  Serious: Yes (Hospitalization, Other)
  Sender: FDA-Public Use
  Company Number: CN-PFIZER INC-PV202200013605

PATIENT
  Age: 55 Year
  Sex: Female
  Weight: 45.5 kg

DRUGS (3)
  1. CYTARABINE [Suspect]
     Active Substance: CYTARABINE
     Indication: Acute monocytic leukaemia
     Dosage: 0.05 G, 1X/DAY
     Route: 061
     Dates: start: 20220526, end: 20220526
  2. METHOTREXATE SODIUM [Suspect]
     Active Substance: METHOTREXATE SODIUM
     Indication: Acute monocytic leukaemia
     Dosage: 10 MG, 1X/DAY
     Route: 061
     Dates: start: 20220526, end: 20220527
  3. IDARUBICIN [Suspect]
     Active Substance: IDARUBICIN
     Indication: Acute monocytic leukaemia
     Dosage: 15 MG, 1X/DAY
     Route: 041
     Dates: start: 20220529, end: 20220529

REACTIONS (1)
  - Myelosuppression [Unknown]

NARRATIVE: CASE EVENT DATE: 20220602
